FAERS Safety Report 15198404 (Version 1)
Quarter: 2018Q3

REPORT INFORMATION
  Report Type: Report from Study
  Country: US (occurrence: US)
  Receive Date: 20180725
  Receipt Date: 20180725
  Transmission Date: 20181010
  Serious: Yes (Hospitalization)
  Sender: FDA-Public Use
  Company Number: US-MYLANLABS-2018M1032690

PATIENT
  Sex: Male
  Weight: 87 kg

DRUGS (2)
  1. GLATIRAMER ACETATE INJECTION [Suspect]
     Active Substance: GLATIRAMER ACETATE
     Indication: RELAPSING-REMITTING MULTIPLE SCLEROSIS
     Dosage: 40 MG, 3XW
     Route: 058
     Dates: start: 20180519
  2. METFORMIN [Suspect]
     Active Substance: METFORMIN HYDROCHLORIDE
     Indication: DIABETES MELLITUS
     Dosage: UNK

REACTIONS (9)
  - Injection site pain [Unknown]
  - Rash [Unknown]
  - Flushing [Recovered/Resolved]
  - Gait inability [Unknown]
  - Urticaria [Unknown]
  - Paraesthesia [Unknown]
  - Feeling hot [Recovered/Resolved]
  - Pain [Unknown]
  - Anxiety [Unknown]
